FAERS Safety Report 9101092 (Version 1)
Quarter: 2013Q1

REPORT INFORMATION
  Report Type: Spontaneous
  Country: DE (occurrence: DE)
  Receive Date: 20130218
  Receipt Date: 20130218
  Transmission Date: 20140127
  Serious: Yes (Death)
  Sender: FDA-Public Use
  Company Number: DE-BAXTER-2013BAX005381

PATIENT
  Sex: Male

DRUGS (3)
  1. PHYSIONEAL [Suspect]
     Indication: PERITONEAL DIALYSIS
     Route: 033
  2. PHYSIONEAL [Suspect]
     Indication: PERITONEAL DIALYSIS
     Route: 033
  3. EXTRANEAL [Suspect]
     Indication: PERITONEAL DIALYSIS
     Route: 033

REACTIONS (1)
  - Death [Fatal]
